FAERS Safety Report 8543833-2 (Version None)
Quarter: 2012Q3

REPORT INFORMATION
  Report Type: 
  Country: None (occurrence: None)
  Receive Date: 20120727
  Receipt Date: 20120723
  Transmission Date: 20120928
  Serious: Yes (Other)
  Sender: FDA-Public Use
  Company Number: US-PFIZER INC-2012177400

PATIENT
  Sex: Female

DRUGS (2)
  1. DILANTIN [Suspect]
     Dosage: UNK
  2. PRISTIQ [Suspect]
     Dosage: UNK

REACTIONS (12)
  - THYROID DISORDER [None]
  - CONVULSION [None]
  - IMPAIRED DRIVING ABILITY [None]
  - DYSGRAPHIA [None]
  - LOSS OF CONSCIOUSNESS [None]
  - ABASIA [None]
  - PSYCHOMOTOR SKILLS IMPAIRED [None]
  - GASTRIC DISORDER [None]
  - MUSCULOSKELETAL DISORDER [None]
  - MUSCULOSKELETAL DISCOMFORT [None]
  - WHEELCHAIR USER [None]
  - SURGERY [None]
